FAERS Safety Report 18200892 (Version 8)
Quarter: 2025Q4

REPORT INFORMATION
  Report Type: Spontaneous
  Country: US (occurrence: US)
  Receive Date: 20200827
  Receipt Date: 20251106
  Transmission Date: 20260117
  Serious: No
  Sender: BIOGEN
  Company Number: US-BIOGEN-2020BI00881932

PATIENT
  Age: 57 Year
  Sex: Female

DRUGS (5)
  1. TYSABRI [Suspect]
     Active Substance: NATALIZUMAB
     Indication: Multiple sclerosis
     Dates: start: 20080307, end: 20140529
  2. TYSABRI [Suspect]
     Active Substance: NATALIZUMAB
  3. TYSABRI [Suspect]
     Active Substance: NATALIZUMAB
     Dosage: DOSAGE TEXT:INFUSED OVER 1 HOUR
     Dates: start: 20151112, end: 20221017
  4. TYSABRI [Suspect]
     Active Substance: NATALIZUMAB
     Dosage: DOSAGE TEXT:INFUSED OVER 1 HOUR
  5. TYSABRI [Suspect]
     Active Substance: NATALIZUMAB
     Dates: start: 20231127, end: 20240228

REACTIONS (7)
  - Prescribed underdose [Recovered/Resolved]
  - Drug monitoring procedure not performed [Unknown]
  - Multiple sclerosis [Unknown]
  - Arthritis [Unknown]
  - Memory impairment [Unknown]
  - Mobility decreased [Not Recovered/Not Resolved]
  - Amnesia [Unknown]
